FAERS Safety Report 9565924 (Version 1)
Quarter: 2013Q3

REPORT INFORMATION
  Report Type: Spontaneous
  Country: US (occurrence: US)
  Receive Date: 20130930
  Receipt Date: 20130930
  Transmission Date: 20140515
  Serious: Yes (Death, Hospitalization)
  Sender: FDA-Public Use
  Company Number: US-MYLANLABS-2013S1021121

PATIENT
  Age: 23 Year
  Sex: Male

DRUGS (2)
  1. ALPRAZOLAM [Suspect]
     Indication: DRUG ABUSE
     Dosage: 3MG
     Route: 045
  2. METHADONE [Interacting]
     Indication: DRUG ABUSE
     Dosage: 40MG
     Route: 048

REACTIONS (8)
  - Central nervous system necrosis [Not Recovered/Not Resolved]
  - Rhabdomyolysis [Not Recovered/Not Resolved]
  - Toxicity to various agents [Fatal]
  - Toxicity to various agents [Fatal]
  - Drug interaction [Fatal]
  - Drug abuse [Fatal]
  - Multi-organ failure [Fatal]
  - Drug interaction [Fatal]
